FAERS Safety Report 8546578-8 (Version None)
Quarter: 2012Q3

REPORT INFORMATION
  Report Type: 
  Country: None (occurrence: None)
  Receive Date: 20120727
  Receipt Date: 20120131
  Transmission Date: 20120928
  Serious: No
  Sender: FDA-Public Use
  Company Number: US-ASTRAZENECA-2011SE78656

PATIENT
  Age: 60 Year
  Sex: Female
  Weight: 64.9 kg

DRUGS (11)
  1. SEROQUEL [Suspect]
     Indication: INSOMNIA
     Route: 048
  2. PREMARINE [Concomitant]
  3. PROTONIX [Concomitant]
  4. SEROQUEL [Suspect]
     Route: 048
  5. TRIAZEPAM [Concomitant]
  6. LEXAPRO [Concomitant]
  7. TRAZIDONE [Concomitant]
  8. SEROQUEL [Suspect]
     Indication: ANXIETY
     Route: 048
  9. SEROQUEL [Suspect]
     Route: 048
  10. LISINOPRIL AND HYDROCHLOROTHIAZIDE [Concomitant]
  11. PRAVACHOL [Concomitant]

REACTIONS (9)
  - ADVERSE DRUG REACTION [None]
  - ACTIVITIES OF DAILY LIVING IMPAIRED [None]
  - DEPRESSION [None]
  - ANXIETY [None]
  - DRUG DOSE OMISSION [None]
  - CRYING [None]
  - OFF LABEL USE [None]
  - INSOMNIA [None]
  - MOOD SWINGS [None]
